FAERS Safety Report 18261485 (Version 2)
Quarter: 2020Q3

REPORT INFORMATION
  Report Type: Spontaneous
  Country: US (occurrence: US)
  Receive Date: 20200914
  Receipt Date: 20200928
  Transmission Date: 20201103
  Serious: No
  Sender: FDA-Public Use
  Company Number: US-TORRENT-00010409

PATIENT
  Age: 83 Year
  Sex: Female
  Weight: 68 kg

DRUGS (4)
  1. ATENOLOL. [Concomitant]
     Active Substance: ATENOLOL
     Indication: HYPERTENSION
     Dosage: 25 MG ONCE A DAY
  2. LOSARTAN. [Concomitant]
     Active Substance: LOSARTAN
     Indication: HYPERTENSION
     Dosage: 100 MG ONCE A DAY
  3. FELODIPINE EXTENDED?RELEASE TABLETS USP [Suspect]
     Active Substance: FELODIPINE
     Indication: HYPERTENSION
     Dosage: 10 MG ONCE A DAY
     Dates: start: 20200827, end: 20200903
  4. FELODIPINE. [Concomitant]
     Active Substance: FELODIPINE
     Indication: HYPERTENSION
     Dosage: UNKNOWN

REACTIONS (3)
  - Product taste abnormal [Unknown]
  - Product quality issue [Unknown]
  - Product odour abnormal [Unknown]

NARRATIVE: CASE EVENT DATE: 2020
